FAERS Safety Report 5372082-4 (Version None)
Quarter: 2007Q2

REPORT INFORMATION
  Report Type: 
  Country: None (occurrence: None)
  Receive Date: 20070627
  Receipt Date: 20070608
  Transmission Date: 20071010
  Serious: Yes (Death, Hospitalization)
  Sender: FDA-Public Use
  Company Number: US-ROCHE-496906

PATIENT
  Age: 47 Year
  Sex: Female
  Weight: 50.3 kg

DRUGS (6)
  1. CAPECITABINE [Suspect]
     Route: 065
     Dates: start: 20060117
  2. CAPECITABINE [Suspect]
     Route: 065
  3. CAPECITABINE [Suspect]
     Route: 065
  4. BEVACIZUMAB [Suspect]
     Route: 042
     Dates: end: 20070412
  5. BLINDED BEVACIZUMAB [Suspect]
     Route: 042
     Dates: start: 20060117
  6. ABRAXANE [Suspect]
     Dosage: FREQUENCY AND ROUTE NOT REPORTED. DRUG REPORTED AS ABRAXANE (PACLITAXEL PROTEIN-BOUND/ALBUMIN).
     Route: 065
     Dates: start: 20060706

REACTIONS (6)
  - CHOLESTASIS [None]
  - COMA HEPATIC [None]
  - HEPATIC FAILURE [None]
  - HEPATIC FIBROSIS [None]
  - METASTASES TO LIVER [None]
  - TUMOUR NECROSIS [None]
